FAERS Safety Report 9558869 (Version 2)
Quarter: 2013Q4

REPORT INFORMATION
  Report Type: Spontaneous
  Country: CA (occurrence: CA)
  Receive Date: 20130927
  Receipt Date: 20131018
  Transmission Date: 20140711
  Serious: Yes (Hospitalization, Other)
  Sender: FDA-Public Use
  Company Number: CA-AMGEN-CANSP2013067260

PATIENT
  Age: 34 Year
  Sex: Female

DRUGS (6)
  1. ENBREL [Suspect]
     Indication: RHEUMATOID ARTHRITIS
     Dosage: 50 MG, QWK
     Route: 065
     Dates: start: 20101005, end: 20130720
  2. PLAQUENIL                          /00072602/ [Concomitant]
     Dosage: 400 MG, UNK
  3. FOLIC ACID [Concomitant]
     Indication: PREGNANCY
     Dosage: 5 MG, QD
     Route: 048
     Dates: start: 20130720, end: 20130916
  4. NAPROSYN                           /00256201/ [Concomitant]
     Indication: RHEUMATOID ARTHRITIS
     Dosage: 375 MG, BID
     Route: 048
     Dates: start: 20130813, end: 20130916
  5. OXYTOCIN [Concomitant]
     Dosage: UNK
     Route: 042
  6. MISOPROSTOL [Concomitant]
     Dosage: 800 MG, UNK
     Route: 054

REACTIONS (7)
  - Ovarian cyst [Unknown]
  - Pain [Unknown]
  - Vaginal haemorrhage [Unknown]
  - Haemoglobin decreased [Unknown]
  - Hypertension [Unknown]
  - Blighted ovum [Unknown]
  - Abortion spontaneous [Recovered/Resolved]
